FAERS Safety Report 4462411-8 (Version None)
Quarter: 2004Q3

REPORT INFORMATION
  Report Type: 
  Country: None (occurrence: None)
  Receive Date: 20040924
  Receipt Date: 20040920
  Transmission Date: 20050211
  Serious: Yes (Hospitalization, Other)
  Sender: FDA-Public Use
  Company Number: GBWYE947104AUG04

PATIENT
  Age: 58 Year
  Sex: Male

DRUGS (8)
  1. SIROLIMUS                       (SIROLIMUS ) [Suspect]
     Indication: RENAL TRANSPLANT
     Dosage: 4 MG 1 X PER 1 DAY
     Route: 048
     Dates: start: 20040726
  2. MYCOPHENOLATE MOFETIL         (MYCOPHENOLATE MOFETIL) [Concomitant]
  3. FUROSEMIDE [Concomitant]
  4. DOXAZOSIN (DOXAZOSIN) [Concomitant]
  5. ASPIRIN [Concomitant]
  6. FLUVASTATIN (FLUVASTATIN) [Concomitant]
  7. CANDESARTAN (CANDESARTAN) [Concomitant]
  8. DIPROBASE (CETOMAC/CETOSTEARYL ALCOHOL/PARRAFIN, LIQUID/WHITE SOFT PAR [Concomitant]

REACTIONS (2)
  - DEHYDRATION [None]
  - HYPOTENSION [None]
